FAERS Safety Report 5599364-5 (Version None)
Quarter: 2008Q1

REPORT INFORMATION
  Report Type: 
  Country: None (occurrence: None)
  Receive Date: 20080122
  Receipt Date: 20080110
  Transmission Date: 20080703
  Serious: Yes (Other)
  Sender: FDA-Public Use
  Company Number: US-PFIZER INC-2008003331

PATIENT
  Sex: Female

DRUGS (3)
  1. AMLODIPINE [Suspect]
  2. BENICAR [Suspect]
  3. DRUG, UNSPECIFIED [Concomitant]

REACTIONS (2)
  - ASTHMA [None]
  - MALAISE [None]
